FAERS Safety Report 4651134-8 (Version None)
Quarter: 2005Q2

REPORT INFORMATION
  Report Type: 
  Country: None (occurrence: None)
  Receive Date: 20050503
  Receipt Date: 20050419
  Transmission Date: 20051028
  Serious: Yes (Death)
  Sender: FDA-Public Use
  Company Number: NO-JNJFOC-20030704666

PATIENT
  Sex: Female

DRUGS (17)
  1. LARGACTIL [Suspect]
     Indication: PAIN
     Dosage: THE DOSE WAS REDUCED ON 11-JUL-2003
  2. RISPERDAL [Suspect]
     Route: 049
     Dates: start: 20030709, end: 20030715
  3. RISPERDAL [Suspect]
     Route: 049
     Dates: start: 20030709, end: 20030715
  4. DOLCONTIN [Concomitant]
     Route: 049
  5. PARACET [Concomitant]
     Route: 049
     Dates: start: 20030708
  6. CLARITIN [Concomitant]
     Route: 049
     Dates: end: 20030708
  7. MYCOSTATIN [Concomitant]
     Route: 049
     Dates: start: 20030704, end: 20030715
  8. AFIPRAN [Concomitant]
     Route: 049
  9. PENICILLIN [Concomitant]
     Route: 042
  10. NAXOGIN [Concomitant]
     Route: 049
  11. LEVAXIN [Concomitant]
     Indication: HYPOTHYROIDISM
     Route: 049
  12. ENTOCORT [Concomitant]
     Route: 049
  13. SOMAC [Concomitant]
     Route: 049
  14. VIOXX [Concomitant]
     Route: 049
  15. CISPLATIN [Concomitant]
     Route: 051
  16. SOBRIL [Concomitant]
     Route: 049
  17. SELEXID [Concomitant]
     Indication: URINARY TRACT INFECTION
     Route: 049

REACTIONS (7)
  - ACUTE PSYCHOSIS [None]
  - ACUTE RESPIRATORY DISTRESS SYNDROME [None]
  - HYPOTENSION [None]
  - NEUROLEPTIC MALIGNANT SYNDROME [None]
  - PNEUMONIA [None]
  - SEPSIS [None]
  - TACHYCARDIA [None]
